FAERS Safety Report 12559446 (Version 13)
Quarter: 2020Q2

REPORT INFORMATION
  Report Type: Spontaneous
  Country: US (occurrence: US)
  Receive Date: 20160715
  Receipt Date: 20200506
  Transmission Date: 20200713
  Serious: Yes (Other)
  Sender: FDA-Public Use
  Company Number: US-PFIZER INC-2016309732

PATIENT
  Age: 59 Year
  Sex: Female

DRUGS (3)
  1. IBRANCE [Suspect]
     Active Substance: PALBOCICLIB
     Indication: BREAST CANCER METASTATIC
     Dosage: 100 MG, UNK
     Dates: start: 20151201
  2. LETROZOLE. [Suspect]
     Active Substance: LETROZOLE
     Indication: BREAST CANCER METASTATIC
     Dosage: 2.5 MG, DAILY
     Dates: start: 201512
  3. IBRANCE [Suspect]
     Active Substance: PALBOCICLIB
     Dosage: 75 MG, CYCLIC (IBRANCE FOR 14 DAYS ON AND 14 DAYS OFF)

REACTIONS (14)
  - Hot flush [Unknown]
  - Nausea [Unknown]
  - Stomatitis [Unknown]
  - Fatigue [Unknown]
  - Lymphadenopathy [Unknown]
  - Neutropenia [Unknown]
  - Constipation [Unknown]
  - Full blood count decreased [Unknown]
  - Full blood count abnormal [Unknown]
  - White blood cell count decreased [Unknown]
  - Alopecia [Unknown]
  - Myalgia [Unknown]
  - Somnolence [Unknown]
  - Diarrhoea [Unknown]
